FAERS Safety Report 21642132 (Version 1)
Quarter: 2022Q4

REPORT INFORMATION
  Report Type: Report from Study
  Country: US (occurrence: US)
  Receive Date: 20221125
  Receipt Date: 20221125
  Transmission Date: 20230112
  Serious: Yes (Hospitalization)
  Sender: FDA-Public Use
  Company Number: US-ABBVIE-22K-163-4523015-00

PATIENT
  Age: 72 Year
  Sex: Female

DRUGS (3)
  1. VENCLEXTA [Suspect]
     Active Substance: VENETOCLAX
     Indication: Chronic lymphocytic leukaemia
     Dosage: 400 MG DAILY
     Route: 048
     Dates: start: 20211222, end: 20221026
  2. MODERNA COVID-19 VACCINE [Concomitant]
     Active Substance: ELASOMERAN
     Indication: COVID-19 immunisation
     Dosage: TIME INTERVAL: 1 TOTAL: 2ND DOSE
     Route: 030
     Dates: start: 202102, end: 202102
  3. MODERNA COVID-19 VACCINE [Concomitant]
     Active Substance: ELASOMERAN
     Indication: COVID-19 immunisation
     Dosage: 1ST DOSE ?FREQUENCY 1 IN ONCE
     Route: 030

REACTIONS (4)
  - Vascular pseudoaneurysm [Recovered/Resolved]
  - Arrhythmia [Not Recovered/Not Resolved]
  - Feeling jittery [Recovered/Resolved]
  - Cardiac stress test abnormal [Recovering/Resolving]

NARRATIVE: CASE EVENT DATE: 20221031
